FAERS Safety Report 7371944-6 (Version None)
Quarter: 2011Q1

REPORT INFORMATION
  Report Type: 
  Country: None (occurrence: None)
  Receive Date: 20110324
  Receipt Date: 20110317
  Transmission Date: 20110831
  Serious: Yes (Death, Hospitalization)
  Sender: FDA-Public Use
  Company Number: US-ROCHE-766687

PATIENT
  Age: 21 Year
  Sex: Male

DRUGS (6)
  1. DIAZEPAM [Suspect]
     Dosage: ROUTE: INGESTION, ONGOING STATUS UNKNOWN AT THE TIME OF DEATH
     Route: 048
  2. CITALOPRAM [Suspect]
     Dosage: ROUTE: INGESTION, ONGOING STATUS UNKNOWN AT THE TIME OF DEATH
     Route: 048
  3. CLONAZEPAM [Suspect]
     Dosage: ROUTE: INGESTION, ONGOING STATUS UNKNOWN AT THE TIME OF DEATH
     Route: 048
  4. ACETAMINOPHEN [Suspect]
     Dosage: ROUTE: INGESTION, ONGOING STATUS UNKNOWN AT THE TIME OF DEATH
     Route: 048
  5. AMLODIPINE [Suspect]
     Route: 048
  6. METOPROLOL [Suspect]
     Dosage: ROUTE: INGESTION, ONGOING STATUS UNKNOWN AT THE TIME OF DEATH
     Route: 048

REACTIONS (3)
  - RESPIRATORY ARREST [None]
  - TOXICITY TO VARIOUS AGENTS [None]
  - CARDIAC ARREST [None]
